FAERS Safety Report 19203094 (Version 4)
Quarter: 2021Q3

REPORT INFORMATION
  Report Type: Report from Study
  Country: US (occurrence: US)
  Receive Date: 20210430
  Receipt Date: 20210707
  Transmission Date: 20211014
  Serious: Yes (Death, Hospitalization, Other)
  Sender: FDA-Public Use
  Company Number: US-BAYER-2021-107368

PATIENT
  Age: 74 Year
  Sex: Male

DRUGS (3)
  1. NEXAVAR [Suspect]
     Active Substance: SORAFENIB
     Indication: HEPATOCELLULAR CARCINOMA
     Dosage: 200 MG, BID ON AN EMPTY STOMACH
     Route: 048
     Dates: start: 202104, end: 20210622
  2. HYDROCODONE [Concomitant]
     Active Substance: HYDROCODONE
     Dosage: UNK
  3. NEXAVAR [Suspect]
     Active Substance: SORAFENIB
     Indication: HEPATOCELLULAR CARCINOMA
     Dosage: 400 MG, BID, ON AN EMPTY STOMACH
     Route: 048
     Dates: start: 20210314

REACTIONS (23)
  - Sepsis [Unknown]
  - Abdominal pain [Not Recovered/Not Resolved]
  - Fluid intake reduced [Recovering/Resolving]
  - Off label use [None]
  - Hiccups [Not Recovered/Not Resolved]
  - Death [Fatal]
  - Cholecystitis infective [None]
  - Confusional state [Recovered/Resolved]
  - Ascites [Not Recovered/Not Resolved]
  - Abdominal pain [Recovering/Resolving]
  - Mobility decreased [Not Recovered/Not Resolved]
  - Food refusal [Recovering/Resolving]
  - Decreased appetite [Recovering/Resolving]
  - Asthenia [Recovering/Resolving]
  - Asthenia [Not Recovered/Not Resolved]
  - Asthenia [None]
  - Confusional state [Recovering/Resolving]
  - Speech disorder [Recovering/Resolving]
  - Fall [Unknown]
  - Mobility decreased [Not Recovered/Not Resolved]
  - Constipation [Not Recovered/Not Resolved]
  - Impaired self-care [Not Recovered/Not Resolved]
  - Decreased activity [Recovering/Resolving]

NARRATIVE: CASE EVENT DATE: 202103
